FAERS Safety Report 4715210-3 (Version None)
Quarter: 2005Q2

REPORT INFORMATION
  Report Type: 
  Country: None (occurrence: None)
  Receive Date: 20050630
  Receipt Date: 20050517
  Transmission Date: 20051028
  Serious: No
  Sender: FDA-Public Use
  Company Number: 210700

PATIENT
  Age: 51 Year
  Sex: Male
  Weight: 72.8 kg

DRUGS (1)
  1. AVASTIN [Suspect]
     Indication: RENAL CELL CARCINOMA STAGE UNSPECIFIED
     Dosage: 15 MG/KG, 1/WEEK, INTRAVENOUS
     Route: 042
     Dates: start: 20041123

REACTIONS (1)
  - INJECTION SITE REACTION [None]
